FAERS Safety Report 21325787 (Version 5)
Quarter: 2023Q2

REPORT INFORMATION
  Report Type: Spontaneous
  Country: FR (occurrence: FR)
  Receive Date: 20220913
  Receipt Date: 20230427
  Transmission Date: 20230721
  Serious: Yes (Hospitalization, Other)
  Sender: FDA-Public Use
  Company Number: FR-KRKA-FR2022K10450LIT

PATIENT
  Age: 34 Year
  Sex: Female

DRUGS (8)
  1. IMATINIB [Suspect]
     Active Substance: IMATINIB
     Indication: Myeloproliferative neoplasm
     Dosage: 400 MILLIGRAM
     Route: 065
     Dates: start: 20200212, end: 20200505
  2. IMATINIB [Suspect]
     Active Substance: IMATINIB
     Indication: Chronic myeloid leukaemia
     Dosage: UNK,RESTARTED TREATMENT WITH IMATINIB
     Route: 065
     Dates: start: 20200731, end: 20200915
  3. DASATINIB [Suspect]
     Active Substance: DASATINIB
     Indication: Myeloproliferative neoplasm
     Dosage: UNK
     Route: 065
     Dates: start: 20200505, end: 20200606
  4. DASATINIB [Suspect]
     Active Substance: DASATINIB
     Indication: Philadelphia positive chronic myeloid leukaemia
  5. HYDROXYUREA [Suspect]
     Active Substance: HYDROXYUREA
     Indication: Myeloproliferative neoplasm
     Dosage: UNK
     Route: 065
     Dates: start: 2004, end: 2005
  6. HYDROXYUREA [Suspect]
     Active Substance: HYDROXYUREA
     Indication: Chronic myeloid leukaemia
     Dosage: UNK
     Route: 065
  7. PEGINTERFERON ALFA-2A [Suspect]
     Active Substance: PEGINTERFERON ALFA-2A
     Indication: Chronic myeloid leukaemia
     Dosage: UNK
     Route: 065
  8. TROLNITRATE [Concomitant]
     Active Substance: TROLNITRATE
     Indication: Myeloproliferative neoplasm
     Dosage: UNK
     Route: 065

REACTIONS (12)
  - Hepatitis fulminant [Recovered/Resolved]
  - Asterixis [Recovered/Resolved]
  - Confusional state [Recovered/Resolved]
  - Fluid retention [Recovering/Resolving]
  - Muscle spasms [Recovering/Resolving]
  - Transaminases increased [Recovered/Resolved]
  - Myopericarditis [Recovered/Resolved]
  - Maternal exposure during pregnancy [Recovered/Resolved]
  - Drug ineffective [Recovered/Resolved]
  - Jaundice [Recovered/Resolved]
  - Generalised oedema [Recovered/Resolved]
  - Muscle spasms [Recovering/Resolving]

NARRATIVE: CASE EVENT DATE: 20200101
